FAERS Safety Report 13523536 (Version 5)
Quarter: 2019Q1

REPORT INFORMATION
  Report Type: Spontaneous
  Country: US (occurrence: US)
  Receive Date: 20170508
  Receipt Date: 20190204
  Transmission Date: 20190417
  Serious: No
  Sender: FDA-Public Use
  Company Number: US-VIFOR (INTERNATIONAL) INC.-VIT-2017-01689

PATIENT
  Sex: Male
  Weight: 79 kg

DRUGS (9)
  1. TAMSULOSIN HCL [Concomitant]
     Active Substance: TAMSULOSIN HYDROCHLORIDE
  2. SODIUM BICARBONATE. [Concomitant]
     Active Substance: SODIUM BICARBONATE
  3. LISINOPRIL. [Concomitant]
     Active Substance: LISINOPRIL
  4. CIALIS [Concomitant]
     Active Substance: TADALAFIL
  5. LUPRON DEPOT (4-MONTH) [Concomitant]
  6. VELTASSA [Suspect]
     Active Substance: PATIROMER
     Indication: HYPERKALAEMIA
     Route: 048
     Dates: start: 20160916
  7. ERGOCALCIFEROL. [Concomitant]
     Active Substance: ERGOCALCIFEROL
  8. VITAMIN D3 COMPLETE [Concomitant]
  9. VIAGRA [Concomitant]
     Active Substance: SILDENAFIL CITRATE

REACTIONS (3)
  - Product dose omission [Unknown]
  - Acne [Unknown]
  - Furuncle [Unknown]
